FAERS Safety Report 9184842 (Version 1)
Quarter: 2013Q1

REPORT INFORMATION
  Report Type: Spontaneous
  Country: US (occurrence: US)
  Receive Date: 20130325
  Receipt Date: 20130325
  Transmission Date: 20140127
  Serious: No
  Sender: FDA-Public Use
  Company Number: US-BRISTOL-MYERS SQUIBB COMPANY-16496085

PATIENT
  Age: 48 Year
  Sex: Female
  Weight: 78 kg

DRUGS (1)
  1. ERBITUX [Suspect]
     Indication: THROAT CANCER
     Route: 042
     Dates: start: 20120301

REACTIONS (2)
  - Dermatitis acneiform [Not Recovered/Not Resolved]
  - Hair growth abnormal [Unknown]
